FAERS Safety Report 7319787-3 (Version None)
Quarter: 2011Q1

REPORT INFORMATION
  Report Type: 
  Country: None (occurrence: None)
  Receive Date: 20110228
  Receipt Date: 20101012
  Transmission Date: 20110831
  Serious: No
  Sender: FDA-Public Use
  Company Number: A0883513A

PATIENT
  Age: 56 Year
  Sex: Female

DRUGS (5)
  1. ZANTAC [Concomitant]
  2. PHENERGAN [Concomitant]
  3. KEPPRA [Concomitant]
     Dosage: 250MG TWICE PER DAY
  4. VIMPAT [Concomitant]
  5. LAMICTAL [Suspect]
     Indication: EPILEPSY
     Dosage: 250MG PER DAY
     Route: 048
     Dates: start: 20100813

REACTIONS (8)
  - DIARRHOEA [None]
  - OROPHARYNGEAL PAIN [None]
  - ABNORMAL FAECES [None]
  - SNEEZING [None]
  - ILL-DEFINED DISORDER [None]
  - WEIGHT DECREASED [None]
  - NAUSEA [None]
  - DYSPNOEA [None]
